FAERS Safety Report 10331309 (Version 1)
Quarter: 2014Q3

REPORT INFORMATION
  Report Type: Spontaneous
  Country: US (occurrence: US)
  Receive Date: 20140722
  Receipt Date: 20140722
  Transmission Date: 20150326
  Serious: No
  Sender: FDA-Public Use
  Company Number: US-TEVA-488285USA

PATIENT
  Sex: Female

DRUGS (1)
  1. FLUCONAZOLE. [Suspect]
     Active Substance: FLUCONAZOLE
     Indication: VULVOVAGINAL MYCOTIC INFECTION
     Dosage: USES ON AND OFF- MANY YEARS

REACTIONS (3)
  - Stomatitis [Recovered/Resolved]
  - Lip swelling [Recovered/Resolved]
  - Cheilitis [Recovered/Resolved]
